FAERS Safety Report 13692764 (Version 1)
Quarter: 2017Q2

REPORT INFORMATION
  Report Type: Spontaneous
  Country: US (occurrence: US)
  Receive Date: 20170626
  Receipt Date: 20170626
  Transmission Date: 20170830
  Serious: No
  Sender: FDA-Public Use
  Company Number: None

PATIENT
  Age: 40 Year
  Sex: Female

DRUGS (2)
  1. ENBREL [Suspect]
     Active Substance: ETANERCEPT
  2. ZARXIO [Suspect]
     Active Substance: FILGRASTIM-SNDZ

REACTIONS (2)
  - Loss of consciousness [None]
  - Alopecia [None]

NARRATIVE: CASE EVENT DATE: 20170626
